FAERS Safety Report 6641050-4 (Version None)
Quarter: 2010Q1

REPORT INFORMATION
  Report Type: 
  Country: None (occurrence: None)
  Receive Date: 20100318
  Receipt Date: 20091214
  Transmission Date: 20100710
  Serious: Yes (Hospitalization)
  Sender: FDA-Public Use
  Company Number: US-ASTRAZENECA-2009SE31788

PATIENT
  Age: 86 Year
  Sex: Female

DRUGS (10)
  1. ZESTRIL [Suspect]
     Indication: HYPERTENSION
     Route: 048
  2. VEGF TRAP-EYE [Suspect]
     Indication: MACULAR DEGENERATION
     Dosage: VGFT 0.5 MG OR 0.2 MG OR RANIBIZUMAB 0.5 MG Q4WKS/Q12WKS
     Dates: start: 20080416, end: 20090318
  3. VEGF TRAP-EYE [Suspect]
     Dosage: VGFT 0.5 MG OR 0.2 MG OR RANDIBIZUMAB 0.5 Q4WKS/Q12WKS
     Dates: start: 20090422
  4. NORVASC [Concomitant]
     Indication: ANGINA PECTORIS
     Route: 048
  5. PRILOSEC [Concomitant]
     Indication: ULCER
     Route: 048
  6. VENTOLIN [Concomitant]
     Indication: ASTHMA
     Dosage: 100 MDI Q4H
     Route: 055
  7. HYDROCHLOROTHIAZIDE [Concomitant]
     Indication: HYPERTENSION
     Route: 048
  8. FLOVENT [Concomitant]
     Indication: ASTHMA
     Route: 055
  9. ASPIRIN [Concomitant]
     Indication: PROPHYLAXIS
     Route: 048
  10. OXEZE [Concomitant]
     Indication: ASTHMA
     Route: 055

REACTIONS (1)
  - ANGIOEDEMA [None]
